FAERS Safety Report 7996771-8 (Version None)
Quarter: 2011Q4

REPORT INFORMATION
  Report Type: 
  Country: None (occurrence: None)
  Receive Date: 20111221
  Receipt Date: 20111213
  Transmission Date: 20120403
  Serious: Yes (Hospitalization)
  Sender: FDA-Public Use
  Company Number: US-US-EMD SERONO, INC.-7027539

PATIENT
  Sex: Female

DRUGS (10)
  1. ATENOLOL [Concomitant]
     Indication: PALPITATIONS
  2. VISTARIL [Concomitant]
     Indication: PREMEDICATION
  3. KLONOPIN [Concomitant]
     Indication: ANXIETY
  4. REBIF [Suspect]
     Route: 058
  5. LEXAPRO [Concomitant]
  6. REBIF [Suspect]
     Indication: MULTIPLE SCLEROSIS
     Route: 058
     Dates: start: 20060705, end: 20101110
  7. REBIF [Suspect]
     Route: 058
     Dates: start: 20101122
  8. PREDNISONE TAB [Suspect]
  9. ATENOLOL [Concomitant]
     Indication: HEART RATE IRREGULAR
     Dates: start: 19970101
  10. VITAMIN D [Concomitant]
     Dates: start: 20080101

REACTIONS (21)
  - APPENDICITIS PERFORATED [None]
  - POSTOPERATIVE WOUND INFECTION [None]
  - INJECTION SITE DISCOLOURATION [None]
  - TRANSFUSION [None]
  - VIRAL INFECTION [None]
  - FALL [None]
  - BLOOD TRIGLYCERIDES DECREASED [None]
  - INFLUENZA LIKE ILLNESS [None]
  - INJECTION SITE PAIN [None]
  - SCAR [None]
  - WEIGHT DECREASED [None]
  - BLOOD CHOLESTEROL DECREASED [None]
  - VITAMIN B12 DECREASED [None]
  - PAIN [None]
  - DIARRHOEA [None]
  - VITAMIN D DECREASED [None]
  - MALAISE [None]
  - INJECTION SITE ERYTHEMA [None]
  - THYROID FUNCTION TEST ABNORMAL [None]
  - BACK INJURY [None]
  - INJECTION SITE PRURITUS [None]
